FAERS Safety Report 5819701-3 (Version None)
Quarter: 2008Q3

REPORT INFORMATION
  Report Type: 
  Country: None (occurrence: None)
  Receive Date: 20080723
  Receipt Date: 20080711
  Transmission Date: 20090109
  Serious: Yes (Hospitalization, Other)
  Sender: FDA-Public Use
  Company Number: US-ELI_LILLY_AND_COMPANY-US200807002442

PATIENT
  Sex: Male

DRUGS (2)
  1. FORTEO [Suspect]
     Indication: OSTEOPOROSIS
     Dates: start: 20070901, end: 20080601
  2. LIPITOR [Concomitant]

REACTIONS (3)
  - FIBULA FRACTURE [None]
  - HEAD INJURY [None]
  - ROAD TRAFFIC ACCIDENT [None]
